FAERS Safety Report 7010459-1 (Version None)
Quarter: 2010Q3

REPORT INFORMATION
  Report Type: 
  Country: None (occurrence: None)
  Receive Date: 20100923
  Receipt Date: 20100914
  Transmission Date: 20110219
  Serious: Yes (Hospitalization)
  Sender: FDA-Public Use
  Company Number: US-ABBOTT-10P-163-0671291-00

PATIENT
  Sex: Male
  Weight: 94.432 kg

DRUGS (4)
  1. HUMIRA [Suspect]
     Indication: CROHN'S DISEASE
     Dates: start: 20081201, end: 20100618
  2. REMICADE [Suspect]
     Indication: CROHN'S DISEASE
     Dates: start: 20000101, end: 20010101
  3. PRILOSEC [Concomitant]
     Indication: GASTROOESOPHAGEAL REFLUX DISEASE
  4. TUMS [Concomitant]
     Indication: GASTROOESOPHAGEAL REFLUX DISEASE

REACTIONS (11)
  - COLITIS [None]
  - CROHN'S DISEASE [None]
  - ILEAL STENOSIS [None]
  - INCISION SITE ABSCESS [None]
  - INCISION SITE BLISTER [None]
  - INCISION SITE ERYTHEMA [None]
  - INFECTION [None]
  - JEJUNAL STENOSIS [None]
  - PAIN [None]
  - RED BLOOD CELL SEDIMENTATION RATE INCREASED [None]
  - WOUND INFECTION FUNGAL [None]
